FAERS Safety Report 5309229-1 (Version None)
Quarter: 2007Q2

REPORT INFORMATION
  Report Type: 
  Country: None (occurrence: None)
  Receive Date: 20070423
  Receipt Date: 20070410
  Transmission Date: 20071010
  Serious: Yes (Hospitalization, Other)
  Sender: FDA-Public Use
  Company Number: 16246

PATIENT
  Age: 67 Year
  Sex: Female

DRUGS (1)
  1. ACYCLOVIR [Suspect]
     Indication: FACIAL PALSY
     Dosage: 200 MG OTH

REACTIONS (6)
  - BRONCHOPNEUMONIA [None]
  - CEREBELLAR HAEMATOMA [None]
  - EMOTIONAL DISORDER [None]
  - NEUROLOGICAL SYMPTOM [None]
  - SUBDURAL HAEMATOMA [None]
  - VIITH NERVE PARALYSIS [None]
